FAERS Safety Report 7610596-4 (Version None)
Quarter: 2011Q3

REPORT INFORMATION
  Report Type: 
  Country: None (occurrence: None)
  Receive Date: 20110715
  Receipt Date: 20110704
  Transmission Date: 20111222
  Serious: Yes (Other)
  Sender: FDA-Public Use
  Company Number: FR-SANOFI-AVENTIS-2011SA042514

PATIENT
  Age: 73 Year
  Sex: Male

DRUGS (5)
  1. CEFTRIAXONE [Suspect]
     Indication: WHIPPLE'S DISEASE
     Route: 065
  2. HYDROXYCHLOROQUINE SULFATE [Suspect]
     Indication: WHIPPLE'S DISEASE
     Route: 065
  3. AZATHIOPRINE [Suspect]
     Route: 065
  4. CORTICOSTEROID NOS [Suspect]
     Route: 065
  5. AZATHIOPRINE [Suspect]
     Route: 065

REACTIONS (3)
  - ARTHRITIS [None]
  - IMMUNE RECONSTITUTION SYNDROME [None]
  - C-REACTIVE PROTEIN INCREASED [None]
